FAERS Safety Report 25413058 (Version 1)
Quarter: 2025Q2

REPORT INFORMATION
  Report Type: Spontaneous
  Country: US (occurrence: US)
  Receive Date: 20250609
  Receipt Date: 20250609
  Transmission Date: 20250717
  Serious: Yes (Other)
  Sender: PFIZER
  Company Number: US-PFIZER INC-PV202500067757

PATIENT
  Age: 50 Year
  Sex: Female

DRUGS (1)
  1. XELJANZ XR [Suspect]
     Active Substance: TOFACITINIB CITRATE

REACTIONS (6)
  - Seizure [Not Recovered/Not Resolved]
  - Neck surgery [Unknown]
  - Ear infection [Not Recovered/Not Resolved]
  - Nausea [Unknown]
  - Ehlers-Danlos syndrome [Not Recovered/Not Resolved]
  - Motion sickness [Not Recovered/Not Resolved]
